FAERS Safety Report 8158662-1 (Version None)
Quarter: 2012Q1

REPORT INFORMATION
  Report Type: 
  Country: None (occurrence: None)
  Receive Date: 20120217
  Receipt Date: 20120209
  Transmission Date: 20120608
  Serious: Yes (Hospitalization)
  Sender: FDA-Public Use
  Company Number: 2012SP007347

PATIENT
  Age: 37 Year
  Sex: Female

DRUGS (1)
  1. CERAZETTE (DESOGESTREL /00754001/) [Suspect]
     Indication: CONTRACEPTION
     Dates: start: 20111101, end: 20120113

REACTIONS (3)
  - DIARRHOEA [None]
  - HYPOTENSION [None]
  - VAGINAL HAEMORRHAGE [None]
